FAERS Safety Report 9305986 (Version 5)
Quarter: 2013Q3

REPORT INFORMATION
  Report Type: Spontaneous
  Country: US (occurrence: US)
  Receive Date: 20130523
  Receipt Date: 20130904
  Transmission Date: 20140515
  Serious: Yes (Hospitalization)
  Sender: FDA-Public Use
  Company Number: US-PFIZER INC-2013157866

PATIENT
  Age: 48 Year
  Sex: Female
  Weight: 89.34 kg

DRUGS (3)
  1. NEURONTIN [Suspect]
     Indication: BACK PAIN
     Dosage: 100 MG, 3X/DAY
     Dates: start: 2011
  2. NEURONTIN [Suspect]
     Indication: ANXIETY
     Dosage: 600 MG, 2X/DAY
  3. NEURONTIN [Suspect]
     Dosage: 1200 MG, 2X/DAY
     Dates: start: 201305

REACTIONS (2)
  - Off label use [Unknown]
  - Depression [Recovering/Resolving]
